FAERS Safety Report 15471926 (Version 2)
Quarter: 2019Q1

REPORT INFORMATION
  Report Type: Spontaneous
  Country: GR (occurrence: GR)
  Receive Date: 20181008
  Receipt Date: 20190228
  Transmission Date: 20190417
  Serious: Yes (Other)
  Sender: FDA-Public Use
  Company Number: GR-009507513-1810GRC001857

PATIENT
  Age: 37 Year
  Sex: Male

DRUGS (2)
  1. KEYTRUDA [Suspect]
     Active Substance: PEMBROLIZUMAB
     Dosage: FLAT DOSE
  2. KEYTRUDA [Suspect]
     Active Substance: PEMBROLIZUMAB
     Indication: BILE DUCT CANCER
     Dosage: 3 CYCLES

REACTIONS (2)
  - Product use in unapproved indication [Unknown]
  - Rheumatoid arthritis [Recovered/Resolved]
